FAERS Safety Report 22051480 (Version 1)
Quarter: 2023Q1

REPORT INFORMATION
  Report Type: Report from Study
  Country: US (occurrence: US)
  Receive Date: 20230301
  Receipt Date: 20230301
  Transmission Date: 20230418
  Serious: Yes (Other)
  Sender: FDA-Public Use
  Company Number: US-ABBVIE-4323761

PATIENT
  Age: 45 Year
  Sex: Female

DRUGS (1)
  1. HUMIRA [Suspect]
     Active Substance: ADALIMUMAB
     Indication: Rheumatoid arthritis
     Route: 058
     Dates: start: 20080302

REACTIONS (5)
  - Carpal tunnel syndrome [Recovered/Resolved]
  - Trigger finger [Recovered/Resolved]
  - Hip arthroplasty [Recovered/Resolved]
  - Foot fracture [Recovering/Resolving]
  - Foot deformity [Recovering/Resolving]

NARRATIVE: CASE EVENT DATE: 20100302
